FAERS Safety Report 10471134 (Version 2)
Quarter: 2014Q4

REPORT INFORMATION
  Report Type: Spontaneous
  Country: US (occurrence: None)
  Receive Date: 20140917
  Receipt Date: 20141217
  Transmission Date: 20150528
  Serious: No
  Sender: FDA-Public Use
  Company Number: 2014CT000069

PATIENT
  Age: 42 Year
  Sex: Female
  Weight: 113.4 kg

DRUGS (10)
  1. CABERGOLINE. [Suspect]
     Active Substance: CABERGOLINE
     Indication: PITUITARY-DEPENDENT CUSHING^S SYNDROME
     Dosage: 2 UNK
     Dates: start: 201212, end: 20140522
  2. MINIVELLE [Concomitant]
     Active Substance: ESTRADIOL
  3. CALCIUM [Concomitant]
     Active Substance: CALCIUM
  4. VITAMIN D [Concomitant]
     Active Substance: CHOLECALCIFEROL
  5. METFORMIN [Concomitant]
     Active Substance: METFORMIN HYDROCHLORIDE
  6. BENICAR [Concomitant]
     Active Substance: OLMESARTAN MEDOXOMIL
  7. KORLYM [Suspect]
     Active Substance: MIFEPRISTONE
     Indication: PITUITARY-DEPENDENT CUSHING^S SYNDROME
     Dates: start: 201404
  8. SYNTHROID [Concomitant]
     Active Substance: LEVOTHYROXINE SODIUM
  9. DESMOPRESSIN [Concomitant]
     Active Substance: DESMOPRESSIN
  10. VITAMIN K [Concomitant]
     Active Substance: PHYTONADIONE

REACTIONS (11)
  - Abdominal distension [None]
  - Retching [None]
  - Vomiting [None]
  - Flushing [None]
  - Feeling abnormal [None]
  - Dizziness [None]
  - Malaise [None]
  - Feeling hot [None]
  - Nausea [None]
  - Incorrect drug administration duration [None]
  - Asthenia [None]

NARRATIVE: CASE EVENT DATE: 201404
